FAERS Safety Report 4289076-2 (Version None)
Quarter: 2004Q1

REPORT INFORMATION
  Report Type: 
  Country: None (occurrence: None)
  Receive Date: 20040130
  Receipt Date: 20031010
  Transmission Date: 20041129
  Serious: No
  Sender: FDA-Public Use
  Company Number: WAES  0310USA01442

PATIENT
  Age: 69 Year
  Sex: Male

DRUGS (12)
  1. EMEND [Suspect]
     Indication: PROPHYLAXIS OF NAUSEA AND VOMITING
     Dosage: SEE IMAGE
     Route: 048
     Dates: start: 20031008, end: 20031008
  2. EMEND [Suspect]
     Indication: PROPHYLAXIS OF NAUSEA AND VOMITING
     Dosage: SEE IMAGE
     Route: 048
     Dates: start: 20030828
  3. EMEND [Suspect]
     Indication: PROPHYLAXIS OF NAUSEA AND VOMITING
     Dosage: SEE IMAGE
     Route: 048
     Dates: start: 20031007
  4. AMBIEN [Concomitant]
  5. DECADRON [Concomitant]
  6. DILANTIN [Concomitant]
  7. FLOMAX [Concomitant]
  8. MOTRIN [Concomitant]
  9. PREVACID [Concomitant]
  10. VICODIN [Concomitant]
  11. CARBOPLATIN [Concomitant]
  12. METOPROLOL [Concomitant]

REACTIONS (1)
  - FEELING ABNORMAL [None]
